FAERS Safety Report 24288180 (Version 1)
Quarter: 2024Q3

REPORT INFORMATION
  Report Type: Spontaneous
  Country: DE (occurrence: DE)
  Receive Date: 20240905
  Receipt Date: 20240905
  Transmission Date: 20241016
  Serious: Yes (Hospitalization, Other)
  Sender: ORGANON
  Company Number: None

PATIENT
  Age: 45 Year
  Sex: Male
  Weight: 99 kg

DRUGS (3)
  1. MONTELUKAST SODIUM [Suspect]
     Active Substance: MONTELUKAST\MONTELUKAST SODIUM
     Indication: Asthma
     Dosage: UNK
     Dates: end: 2016
  2. OMALIZUMAB [Suspect]
     Active Substance: OMALIZUMAB
     Indication: Asthma
     Dosage: UNK
     Dates: start: 20160328, end: 2016
  3. FLECAINIDE [Concomitant]
     Active Substance: FLECAINIDE
     Indication: Tachycardia
     Dosage: UNK

REACTIONS (49)
  - Arrhythmia supraventricular [Recovered/Resolved]
  - Myocarditis [Recovered/Resolved]
  - Eosinophilic granulomatosis with polyangiitis [Recovered/Resolved]
  - Hypereosinophilic syndrome [Recovered/Resolved]
  - Endocarditis fibroplastica [Recovered/Resolved]
  - Pulmonary function test decreased [Recovered/Resolved]
  - Electrocardiogram ST segment depression [Unknown]
  - C-reactive protein increased [Unknown]
  - Hilar lymphadenopathy [Unknown]
  - Cardiomegaly [Unknown]
  - White blood cell count increased [Unknown]
  - Blood cholesterol increased [Unknown]
  - Eosinophilia [Unknown]
  - Chronic obstructive pulmonary disease [Unknown]
  - Blood creatine phosphokinase MB increased [Unknown]
  - Cardiomyopathy [Unknown]
  - Pleural effusion [Unknown]
  - Blood immunoglobulin E increased [Unknown]
  - Blood creatinine increased [Unknown]
  - Blood pressure increased [Unknown]
  - Bronchitis [Unknown]
  - Cardiac disorder [Unknown]
  - Hyperplasia [Unknown]
  - Lymphostasis [Unknown]
  - Low density lipoprotein increased [Unknown]
  - Troponin T increased [Unknown]
  - Ejection fraction decreased [Unknown]
  - Extrasystoles [Unknown]
  - Hypokinesia [Unknown]
  - Electrocardiogram T wave inversion [Unknown]
  - Erythema [Unknown]
  - Granulomatosis with polyangiitis [Recovering/Resolving]
  - Pericardial effusion [Unknown]
  - Palpitations [Unknown]
  - Atypical pneumonia [Unknown]
  - Arteriosclerosis coronary artery [Unknown]
  - Dyspnoea [Unknown]
  - High density lipoprotein decreased [Unknown]
  - Blood creatine phosphokinase increased [Unknown]
  - Fatigue [Unknown]
  - Tachycardia [Unknown]
  - Candida infection [Unknown]
  - Blood lactate dehydrogenase increased [Unknown]
  - Sarcoidosis [Unknown]
  - Performance status decreased [Unknown]
  - Chronic sinusitis [Unknown]
  - Supraventricular tachycardia [Unknown]
  - Arrhythmia [Unknown]
  - Activated partial thromboplastin time prolonged [Unknown]

NARRATIVE: CASE EVENT DATE: 20160418
